FAERS Safety Report 9656551 (Version 2)
Quarter: 2013Q4

REPORT INFORMATION
  Report Type: Report from Study
  Country: US (occurrence: US)
  Receive Date: 20131030
  Receipt Date: 20131030
  Transmission Date: 20140711
  Serious: Yes (Other)
  Sender: FDA-Public Use
  Company Number: PHEH2013US021076

PATIENT
  Age: 76 Year
  Sex: Female

DRUGS (7)
  1. AFINITOR [Suspect]
     Indication: BREAST CANCER
     Dosage: 10 MG, QD
     Dates: start: 20130401
  2. LISINOPRIL [Concomitant]
  3. ASPIRIN [Concomitant]
  4. PRAVASTATIN [Concomitant]
  5. ASA [Concomitant]
  6. ONDANSETRON [Concomitant]
  7. EXTAVIA [Concomitant]

REACTIONS (28)
  - Hallucination [Unknown]
  - Fracture [Unknown]
  - Disturbance in attention [Unknown]
  - Eating disorder [Unknown]
  - Hypoaesthesia [Unknown]
  - Paraesthesia [Unknown]
  - Skin exfoliation [Unknown]
  - Contusion [Unknown]
  - Fear [Unknown]
  - Nasal congestion [Unknown]
  - Rhinorrhoea [Unknown]
  - Burning sensation [Unknown]
  - Feeling abnormal [Unknown]
  - Movement disorder [Unknown]
  - Depression [Unknown]
  - Dizziness [Unknown]
  - Weight decreased [Unknown]
  - Nail disorder [Unknown]
  - Stomatitis [Unknown]
  - Blood glucose increased [Unknown]
  - Abdominal pain upper [Unknown]
  - Insomnia [Unknown]
  - Epistaxis [Unknown]
  - Nausea [Unknown]
  - Dyspnoea [Unknown]
  - Decreased appetite [Unknown]
  - Diarrhoea [Not Recovered/Not Resolved]
  - Constipation [Unknown]
